FAERS Safety Report 11169062 (Version 3)
Quarter: 2015Q3

REPORT INFORMATION
  Report Type: Spontaneous
  Country: BR (occurrence: BR)
  Receive Date: 20150605
  Receipt Date: 20150805
  Transmission Date: 20151125
  Serious: Yes (Other)
  Sender: FDA-Public Use
  Company Number: BR-MUNDIPHARMA DS AND PHARMACOVIGILANCE-GBR-2015-0028571

PATIENT
  Age: 33 Year
  Sex: Male

DRUGS (1)
  1. OXYCONTIN [Suspect]
     Active Substance: OXYCODONE HYDROCHLORIDE
     Indication: FRACTURE
     Dosage: 10 MG, UNK
     Route: 048

REACTIONS (1)
  - Ulcer haemorrhage [Unknown]
